FAERS Safety Report 8986988 (Version 1)
Quarter: 2012Q4

REPORT INFORMATION
  Report Type: 
  Country: DK (occurrence: DK)
  Receive Date: 20121226
  Receipt Date: 20121226
  Transmission Date: 20130627
  Serious: Yes (Hospitalization, Other)
  Sender: FDA-Public Use
  Company Number: PHHY2012DK117661

PATIENT
  Age: 69 Year
  Sex: Male
  Weight: 73.4 kg

DRUGS (12)
  1. CLOPIDOGREL [Suspect]
     Route: 065
     Dates: start: 200910, end: 20091020
  2. CLOPIDOGREL [Suspect]
     Dosage: 75 mg, QD
     Route: 065
     Dates: start: 20091022, end: 20091026
  3. CLOPIDOGREL [Suspect]
     Dosage: 75 mg, QD
     Route: 065
     Dates: start: 20090928
  4. ACETYLSALICYLIC ACID [Suspect]
     Dosage: 75 mg, UNK
     Route: 065
     Dates: start: 20090928, end: 20091020
  5. ACETYLSALICYLIC ACID [Suspect]
     Route: 065
     Dates: start: 20091022, end: 20091026
  6. ACETYLSALICYLIC ACID [Suspect]
     Route: 065
     Dates: start: 20091031
  7. SIMVASTATIN [Concomitant]
     Dosage: 40 mg, UNK
     Dates: start: 20091028
  8. RAMIPRIL [Concomitant]
     Dosage: 10 mg, UNK
     Dates: start: 20090103
  9. AMLODIPINE [Concomitant]
     Dosage: 10 mg, UNK
     Dates: start: 20090526
  10. METOPROLOL [Concomitant]
     Dosage: 75 mg, UNK
     Dates: start: 20090610, end: 20091026
  11. METOPROLOL [Concomitant]
     Dosage: 25 mg, UNK
     Dates: start: 20091026
  12. DALCETRAPIB [Concomitant]
     Route: 048
     Dates: start: 20090821, end: 20091020

REACTIONS (5)
  - Barrett^s oesophagus [Unknown]
  - Syncope [Unknown]
  - Hiatus hernia [Unknown]
  - Gastric haemorrhage [Recovered/Resolved]
  - Melaena [Unknown]
